FAERS Safety Report 5205880-8 (Version None)
Quarter: 2006Q4

REPORT INFORMATION
  Report Type: 
  Country: None (occurrence: None)
  Receive Date: 20061027
  Receipt Date: 20060906
  Transmission Date: 20070319
  Serious: No
  Sender: FDA-Public Use
  Company Number: 012390

PATIENT
  Age: 44 Year
  Sex: Female

DRUGS (13)
  1. PRIALT [Suspect]
     Indication: SYRINGOMYELIA
     Dosage: SEE IMAGE
     Route: 037
     Dates: start: 20060512, end: 20060516
  2. PRIALT [Suspect]
     Indication: SYRINGOMYELIA
     Dosage: SEE IMAGE
     Route: 037
     Dates: start: 20051228, end: 20060521
  3. PRIALT [Suspect]
     Indication: SYRINGOMYELIA
     Dosage: SEE IMAGE
     Route: 037
     Dates: start: 20060516, end: 20060601
  4. PRIALT [Suspect]
     Indication: SYRINGOMYELIA
     Dosage: SEE IMAGE
     Route: 037
     Dates: start: 20060620, end: 20060706
  5. PRIALT [Suspect]
     Indication: SYRINGOMYELIA
     Dosage: SEE IMAGE
     Route: 037
     Dates: start: 20060706, end: 20060720
  6. PRIALT [Suspect]
     Indication: SYRINGOMYELIA
     Dosage: SEE IMAGE
     Route: 037
     Dates: start: 20060720, end: 20060720
  7. PRIALT [Suspect]
     Indication: SYRINGOMYELIA
     Dosage: SEE IMAGE
     Route: 037
     Dates: start: 20060720, end: 20060721
  8. PRIALT [Suspect]
     Indication: SYRINGOMYELIA
     Dosage: SEE IMAGE
     Route: 037
     Dates: start: 20060721, end: 20060821
  9. MORPHINE [Concomitant]
  10. PAMELOR (NORTIPTYLINE HYDROCHLORIDE) [Concomitant]
  11. PREVACID [Concomitant]
  12. SYNTHROID [Concomitant]
  13. HYDROMORPHONE HCL [Concomitant]

REACTIONS (8)
  - ARTHRALGIA [None]
  - BACK PAIN [None]
  - BLOOD CREATINE PHOSPHOKINASE INCREASED [None]
  - CHROMATURIA [None]
  - MYOGLOBIN BLOOD INCREASED [None]
  - PAIN IN EXTREMITY [None]
  - RHABDOMYOLYSIS [None]
  - URINARY RETENTION [None]
